FAERS Safety Report 8134229-6 (Version None)
Quarter: 2012Q1

REPORT INFORMATION
  Report Type: 
  Country: None (occurrence: None)
  Receive Date: 20120209
  Receipt Date: 20120127
  Transmission Date: 20120608
  Serious: Yes (Hospitalization, Disabling, Other)
  Sender: FDA-Public Use
  Company Number: 2012MA001255

PATIENT
  Sex: Female
  Weight: 97.977 kg

DRUGS (53)
  1. AMBIEN [Concomitant]
  2. AUGMENTIN '125' [Concomitant]
  3. FLAGYL [Concomitant]
  4. FOSAMAX [Concomitant]
  5. IBUPROFEN [Concomitant]
  6. MECLIZINE [Concomitant]
  7. PERCOCET [Concomitant]
  8. PROTONIX [Concomitant]
  9. QUININE SULFATE [Concomitant]
  10. ROCEPHIN [Concomitant]
  11. SEPTRA [Concomitant]
  12. DILAUDID [Concomitant]
  13. INDOCIN [Concomitant]
  14. KAY CIEL DURA-TABS [Concomitant]
  15. MCARDIS [Concomitant]
  16. WARFARIN SODIUM [Concomitant]
  17. ZOFRAN [Concomitant]
  18. DIGOXIN [Suspect]
     Dosage: 0.25 MG;QD;PO
     Route: 048
     Dates: start: 20080212, end: 20081029
  19. NAPROXEN (ALEVE) [Concomitant]
  20. HYDROCHLOROTHIAZIDE [Concomitant]
  21. HYDROMORPHONE HCL [Concomitant]
  22. MAGNESIUM [Concomitant]
  23. NORVASC [Concomitant]
  24. SOLU-MEDROL [Concomitant]
  25. ACTIVASE [Concomitant]
  26. UNASYN [Concomitant]
  27. VOLTAREN [Concomitant]
  28. ASPIRIN [Concomitant]
  29. LASIX [Concomitant]
  30. PREVACID [Concomitant]
  31. ALLOPURINOL [Concomitant]
  32. ALTACE [Concomitant]
  33. ATIVAN [Concomitant]
  34. COMPAZINE [Concomitant]
  35. COREG [Concomitant]
  36. GENTAMICIN [Concomitant]
  37. MOTRIN [Concomitant]
  38. ZOSYN [Concomitant]
  39. COLCHICINE [Concomitant]
  40. DEMEROL [Concomitant]
  41. DIOVAN [Concomitant]
  42. HEPARIN [Concomitant]
  43. ISORDIL [Concomitant]
  44. SYNTHROID [Concomitant]
  45. KEFLEX [Concomitant]
  46. PEPCID [Concomitant]
  47. PROCARDIA [Concomitant]
  48. XYLOCAINE [Concomitant]
  49. ANCEF [Concomitant]
  50. HYDRALAZINE HCL [Concomitant]
  51. NITROGLYCERIN [Concomitant]
  52. PREDNISONE TAB [Concomitant]
  53. AVNCOMYCIN [Concomitant]

REACTIONS (100)
  - POLLAKIURIA [None]
  - MUSCLE SPASMS [None]
  - DIVERTICULITIS [None]
  - CARDIAC FAILURE [None]
  - MENISCUS LESION [None]
  - BACK PAIN [None]
  - ARTHRITIS [None]
  - OTITIS MEDIA [None]
  - HYPOKALAEMIA [None]
  - ABSCESS LIMB [None]
  - HEREDITARY SPHEROCYTOSIS [None]
  - CALCINOSIS [None]
  - DILATATION ATRIAL [None]
  - PAIN IN EXTREMITY [None]
  - PAIN [None]
  - OEDEMA PERIPHERAL [None]
  - PHOTOPHOBIA [None]
  - CRYING [None]
  - DYSPNOEA [None]
  - HAND FRACTURE [None]
  - SYNOVITIS [None]
  - OSTEOPOROSIS [None]
  - DEEP VEIN THROMBOSIS [None]
  - NASAL SEPTUM DEVIATION [None]
  - CARDIAC FAILURE CONGESTIVE [None]
  - ANGIOGRAM [None]
  - TIBIA FRACTURE [None]
  - PULMONARY EMBOLISM [None]
  - ANGINA UNSTABLE [None]
  - HYPERTENSIVE HEART DISEASE [None]
  - DEHYDRATION [None]
  - ANXIETY [None]
  - DIARRHOEA [None]
  - CELLULITIS [None]
  - JOINT DEPOSIT [None]
  - MICTURITION URGENCY [None]
  - CHEST PAIN [None]
  - DIZZINESS [None]
  - PYREXIA [None]
  - HYPOPHAGIA [None]
  - ROAD TRAFFIC ACCIDENT [None]
  - VASCULITIS [None]
  - CLAVICLE FRACTURE [None]
  - HYPERTENSION [None]
  - DIVERTICULUM [None]
  - PERIPHERAL ISCHAEMIA [None]
  - EMBOLISM [None]
  - GASTROINTESTINAL HAEMORRHAGE [None]
  - COMPRESSION FRACTURE [None]
  - OESOPHAGITIS [None]
  - HEART RATE IRREGULAR [None]
  - HAEMATURIA [None]
  - SUPRAPUBIC PAIN [None]
  - DYSURIA [None]
  - PERIPHERAL COLDNESS [None]
  - SKIN WARM [None]
  - HEADACHE [None]
  - NAUSEA [None]
  - VOMITING [None]
  - WOUND NECROSIS [None]
  - ABSCESS [None]
  - INTESTINAL OBSTRUCTION [None]
  - GASTRITIS [None]
  - ATRIAL FIBRILLATION [None]
  - EAR CONGESTION [None]
  - JOINT EFFUSION [None]
  - STAPHYLOCOCCAL INFECTION [None]
  - PHLEBOLITH [None]
  - UTERINE ATROPHY [None]
  - SKIN DISCOLOURATION [None]
  - MOANING [None]
  - WEIGHT DECREASED [None]
  - NECK PAIN [None]
  - PRODUCTIVE COUGH [None]
  - ABDOMINAL PAIN [None]
  - OBESITY [None]
  - DIVERTICULUM INTESTINAL [None]
  - OVARIAN CYST [None]
  - HYPOAESTHESIA [None]
  - CENTRAL VENOUS CATHETERISATION [None]
  - PYELONEPHRITIS [None]
  - GOUT [None]
  - OSTEOMYELITIS [None]
  - SKIN ULCER [None]
  - FALL [None]
  - SINUSITIS [None]
  - COSTOVERTEBRAL ANGLE TENDERNESS [None]
  - FLANK PAIN [None]
  - INSOMNIA [None]
  - FEELING COLD [None]
  - ARTHRALGIA [None]
  - OROPHARYNGEAL PAIN [None]
  - WOUND INFECTION [None]
  - CARDIOMEGALY [None]
  - OSTEOARTHRITIS [None]
  - HAEMORRHOIDS [None]
  - DEAFNESS [None]
  - CALCULUS URETERIC [None]
  - TALIPES [None]
  - UNEVALUABLE EVENT [None]
